FAERS Safety Report 6385301-2 (Version None)
Quarter: 2009Q4

REPORT INFORMATION
  Report Type: 
  Country: None (occurrence: None)
  Receive Date: 20091002
  Receipt Date: 20080821
  Transmission Date: 20100525
  Serious: No
  Sender: FDA-Public Use
  Company Number: US-ASTRAZENECA-2008UW17158

PATIENT
  Age: 64 Year
  Sex: Female
  Weight: 63.5 kg

DRUGS (4)
  1. ARIMIDEX [Suspect]
     Indication: BREAST CANCER FEMALE
     Route: 048
     Dates: start: 20050801
  2. ACTONEL [Concomitant]
  3. PROTONIX [Concomitant]
  4. SPIRONOLACTONE [Concomitant]

REACTIONS (6)
  - ALOPECIA [None]
  - ARTHRITIS [None]
  - BONE PAIN [None]
  - DRY SKIN [None]
  - OEDEMA PERIPHERAL [None]
  - VULVOVAGINAL PAIN [None]
